FAERS Safety Report 4784007-0 (Version None)
Quarter: 2005Q3

REPORT INFORMATION
  Report Type: 
  Country: None (occurrence: None)
  Receive Date: 20050927
  Receipt Date: 20050802
  Transmission Date: 20060218
  Serious: No
  Sender: FDA-Public Use
  Company Number: SP00480

PATIENT
  Sex: Female

DRUGS (1)
  1. XIFAXAN [Suspect]
     Indication: HEPATIC ENCEPHALOPATHY
     Dosage: SEE IMAGE
     Route: 048
     Dates: start: 20040729, end: 20050802

REACTIONS (1)
  - VOMITING [None]
